FAERS Safety Report 5837485-X (Version None)
Quarter: 2008Q3

REPORT INFORMATION
  Report Type: 
  Country: None (occurrence: None)
  Receive Date: 20080807
  Receipt Date: 20080725
  Transmission Date: 20090109
  Serious: Yes (Hospitalization)
  Sender: FDA-Public Use
  Company Number: US-ELI_LILLY_AND_COMPANY-US200807005242

PATIENT
  Sex: Female

DRUGS (4)
  1. CYMBALTA [Suspect]
     Indication: DEPRESSION
     Dosage: 60 MG, DAILY (1/D)
     Dates: start: 20080707
  2. CYMBALTA [Suspect]
     Dosage: 840 MG, UNK
     Dates: start: 20080720
  3. LUNESTA [Concomitant]
     Indication: SLEEP DISORDER
     Dosage: 1 D/F, UNK
  4. FLEXERIL [Concomitant]
     Indication: JOINT INJURY
     Dosage: 1 D/F, UNK

REACTIONS (4)
  - DEPRESSED LEVEL OF CONSCIOUSNESS [None]
  - OVERDOSE [None]
  - RESPIRATORY RATE DECREASED [None]
  - SUICIDE ATTEMPT [None]
